FAERS Safety Report 13056541 (Version 3)
Quarter: 2017Q1

REPORT INFORMATION
  Report Type: Spontaneous
  Country: UA (occurrence: UA)
  Receive Date: 20161222
  Receipt Date: 20170224
  Transmission Date: 20170428
  Serious: Yes (Hospitalization)
  Sender: FDA-Public Use
  Company Number: UA-SA-2016SA220185

PATIENT
  Age: 32 Year
  Sex: Female
  Weight: 55 kg

DRUGS (5)
  1. SOLOSTAR [Concomitant]
     Active Substance: DEVICE
     Indication: TYPE 1 DIABETES MELLITUS
     Dates: start: 20161115
  2. APIDRA [Concomitant]
     Active Substance: INSULIN GLULISINE
     Indication: TYPE 1 DIABETES MELLITUS
     Dosage: 12-14 U X 10-12 UX8-10U
     Route: 058
  3. ACTRAPID [Concomitant]
     Active Substance: INSULIN HUMAN
  4. TOUJEO [Suspect]
     Active Substance: INSULIN GLARGINE
     Indication: TYPE 1 DIABETES MELLITUS
     Dosage: DOSE:22 UNIT(S)
     Route: 058
     Dates: start: 20161115
  5. PROTAPHANE [Concomitant]
     Active Substance: INSULIN HUMAN

REACTIONS (23)
  - Angiomyolipoma [Unknown]
  - Lens disorder [Unknown]
  - Metabolic cardiomyopathy [Unknown]
  - Hypoaesthesia [Unknown]
  - Heart rate increased [Unknown]
  - Metabolic encephalopathy [Unknown]
  - Hypercholesterolaemia [Unknown]
  - Diabetic metabolic decompensation [Unknown]
  - Dry skin [Unknown]
  - Blood glucose increased [Recovered/Resolved]
  - Drug ineffective [Recovering/Resolving]
  - Asthenia [Unknown]
  - Polyuria [Unknown]
  - Pallor [Unknown]
  - Thirst [Unknown]
  - Peripheral coldness [Unknown]
  - Diarrhoea [Unknown]
  - Abdominal pain upper [Unknown]
  - Glycosylated haemoglobin increased [Unknown]
  - Astigmatism [Unknown]
  - Hypoglycaemia [Unknown]
  - Dyspnoea [Unknown]
  - Skin turgor decreased [Unknown]

NARRATIVE: CASE EVENT DATE: 20161115
